FAERS Safety Report 15621935 (Version 1)
Quarter: 2018Q4

REPORT INFORMATION
  Report Type: Spontaneous
  Country: US (occurrence: US)
  Receive Date: 20181109
  Receipt Date: 20181109
  Transmission Date: 20190205
  Serious: No
  Sender: FDA-Public Use
  Company Number: None

PATIENT
  Age: 58 Year
  Sex: Male

DRUGS (1)
  1. VANCO 1.25GM FRESENIUS [Suspect]
     Active Substance: VANCOMYCIN
     Indication: CROHN^S DISEASE
     Route: 042
     Dates: start: 20180911, end: 20181029

REACTIONS (3)
  - Tinnitus [None]
  - Deafness [None]
  - Therapy change [None]

NARRATIVE: CASE EVENT DATE: 20181029
